FAERS Safety Report 17036469 (Version 1)
Quarter: 2019Q4

REPORT INFORMATION
  Report Type: Spontaneous
  Country: US (occurrence: US)
  Receive Date: 20191015
  Receipt Date: 20191015
  Transmission Date: 20200122
  Serious: Yes (Death)
  Sender: FDA-Public Use
  Company Number: None

PATIENT
  Age: 9 Year
  Sex: Male

DRUGS (30)
  1. DIAZEPAM. [Concomitant]
     Active Substance: DIAZEPAM
  2. ALBUTEROL. [Concomitant]
     Active Substance: ALBUTEROL
  3. RANITIDINE. [Concomitant]
     Active Substance: RANITIDINE
  4. MORPHINE [Concomitant]
     Active Substance: MORPHINE
  5. TOBRAMYCIN 300MG [Suspect]
     Active Substance: TOBRAMYCIN
     Dosage: ?          OTHER FREQUENCY:EVERY 12 HOURS;?
     Route: 055
     Dates: start: 20190820, end: 20191001
  6. CARAFATE [Concomitant]
     Active Substance: SUCRALFATE
  7. IPRATROPIUM/SOL [Concomitant]
  8. PREVACID [Concomitant]
     Active Substance: LANSOPRAZOLE
  9. SODIUM BICARB [Concomitant]
     Active Substance: SODIUM BICARBONATE
  10. GABENTIN [Concomitant]
     Active Substance: GABAPENTIN
  11. PULMOZYNE [Concomitant]
  12. GLYCOPYRROL [Concomitant]
  13. CARNITOR [Concomitant]
     Active Substance: LEVOCARNITINE
  14. BUDESONIDE. [Concomitant]
     Active Substance: BUDESONIDE
  15. CYPROHEPTAD [Concomitant]
  16. VIGABATRIN 500MG [Suspect]
     Active Substance: VIGABATRIN
     Dosage: OTHER DOSE 1000 MG AM - 150 MG PM
     Route: 048
     Dates: start: 20190614, end: 20191001
  17. EPIDIOLEX [Concomitant]
     Active Substance: CANNABIDIOL
  18. TYLENOL [Concomitant]
     Active Substance: ACETAMINOPHEN
  19. SINGULAIR [Concomitant]
     Active Substance: MONTELUKAST SODIUM
  20. LEVSIN [Concomitant]
     Active Substance: HYOSCYAMINE SULFATE
  21. TOBRAMYCIN 300MG/5ML [Suspect]
     Active Substance: TOBRAMYCIN
     Route: 055
     Dates: start: 20190820, end: 20191001
  22. PHENOBARB [Concomitant]
     Active Substance: PHENOBARBITAL SODIUM
  23. BANZEL [Concomitant]
     Active Substance: RUFINAMIDE
  24. BRIVIACT [Concomitant]
     Active Substance: BRIVARACETAM
  25. LANSOPRAZOLE. [Concomitant]
     Active Substance: LANSOPRAZOLE
  26. METHADONE [Concomitant]
     Active Substance: METHADONE HYDROCHLORIDE
  27. NASONEX [Concomitant]
     Active Substance: MOMETASONE FUROATE
  28. BACLOFEN. [Concomitant]
     Active Substance: BACLOFEN
  29. CLONIDINE. [Concomitant]
     Active Substance: CLONIDINE
  30. MIDAZOLAM [Concomitant]
     Active Substance: MIDAZOLAM HYDROCHLORIDE

REACTIONS (1)
  - Death [None]

NARRATIVE: CASE EVENT DATE: 20191001
